FAERS Safety Report 19418020 (Version 1)
Quarter: 2021Q2

REPORT INFORMATION
  Report Type: Spontaneous
  Country: ES (occurrence: ES)
  Receive Date: 20210615
  Receipt Date: 20210615
  Transmission Date: 20210717
  Serious: Yes (Hospitalization)
  Sender: FDA-Public Use
  Company Number: ES-TEVA-2021-ES-1921466

PATIENT
  Age: 61 Year
  Sex: Female

DRUGS (5)
  1. HUMALOG MIX75/25 KWIKPEN [Concomitant]
     Active Substance: INSULIN LISPRO
     Indication: DIABETES MELLITUS
     Dosage: SUSPENSION INJECTABLE
     Route: 058
     Dates: start: 20191216
  2. PRANDIN 2 MG, COMPRIMIDOS, 90 COMPRIMIDOS [Concomitant]
     Indication: DIABETES MELLITUS
     Route: 048
     Dates: start: 20120504
  3. TAMOXIFENO CITRATO (733CI) [Suspect]
     Active Substance: TAMOXIFEN CITRATE
     Indication: BREAST CANCER
     Dosage: 20MG
     Route: 048
     Dates: start: 20170202, end: 20210412
  4. METFORMINA (1359A) [Concomitant]
     Active Substance: METFORMIN HYDROCHLORIDE
     Indication: DIABETES MELLITUS
     Route: 048
     Dates: start: 20140109
  5. SIMVASTATINA (1023A) [Concomitant]
     Active Substance: SIMVASTATIN
     Indication: DYSLIPIDAEMIA
     Route: 048
     Dates: start: 20111014, end: 20210411

REACTIONS (2)
  - Jugular vein thrombosis [Recovering/Resolving]
  - Ischaemic stroke [Recovered/Resolved]

NARRATIVE: CASE EVENT DATE: 20210411
